FAERS Safety Report 22918106 (Version 5)
Quarter: 2025Q2

REPORT INFORMATION
  Report Type: Other
  Country: US (occurrence: US)
  Receive Date: 20230907
  Receipt Date: 20250528
  Transmission Date: 20250716
  Serious: Yes (Hospitalization)
  Sender: TRAVERE THERAPEUTICS
  Company Number: US-TRAVERE-2023TVT00376

PATIENT
  Sex: Male
  Weight: 87.09 kg

DRUGS (5)
  1. FILSPARI [Suspect]
     Active Substance: SPARSENTAN
     Indication: IgA nephropathy
     Route: 048
     Dates: start: 202307
  2. FARXIGA [Concomitant]
     Active Substance: DAPAGLIFLOZIN PROPANEDIOL
  3. FEBUXOSTAT [Concomitant]
     Active Substance: FEBUXOSTAT
  4. SUCRALFATE [Concomitant]
     Active Substance: SUCRALFATE
  5. FAMOTIDINE [Concomitant]
     Active Substance: FAMOTIDINE

REACTIONS (3)
  - Colitis [Unknown]
  - Hiatus hernia [Unknown]
  - Drug ineffective [Unknown]
